FAERS Safety Report 8423077-5 (Version None)
Quarter: 2012Q2

REPORT INFORMATION
  Report Type: 
  Country: None (occurrence: None)
  Receive Date: 20120608
  Receipt Date: 20120529
  Transmission Date: 20120825
  Serious: Yes (Life-Threatening, Hospitalization)
  Sender: FDA-Public Use
  Company Number: DE-JNJFOC-20120414186

PATIENT
  Sex: Male
  Weight: 73 kg

DRUGS (8)
  1. METOPROLOL TARTRATE [Concomitant]
  2. XARELTO [Suspect]
     Indication: ATRIAL FIBRILLATION
     Route: 048
  3. ALLOPURINOL [Concomitant]
  4. SIMVASTATIN [Concomitant]
  5. XARELTO [Suspect]
     Indication: CEREBROVASCULAR ACCIDENT PROPHYLAXIS
     Route: 048
  6. AMARYL [Concomitant]
  7. TELMISARTAN [Concomitant]
  8. VILDAGLIPTIN [Concomitant]

REACTIONS (2)
  - ANAEMIA [None]
  - GASTROINTESTINAL HAEMORRHAGE [None]
